FAERS Safety Report 9902231 (Version 2)
Quarter: 2014Q1

REPORT INFORMATION
  Report Type: Spontaneous
  Country: JP (occurrence: JP)
  Receive Date: 20140217
  Receipt Date: 20140317
  Transmission Date: 20141002
  Serious: Yes (Other)
  Sender: FDA-Public Use
  Company Number: JP-JNJFOC-20140204739

PATIENT
  Age: 59 Year
  Sex: Female

DRUGS (2)
  1. DOXORUBICIN HYDROCHLORIDE(DOXIL) [Suspect]
     Indication: OVARIAN CANCER
     Route: 042
     Dates: start: 20140130
  2. CARBOPLATIN [Suspect]
     Indication: OVARIAN CANCER
     Dosage: 5 AREA UNDER THE CONCENTRATION CURVE (AUC)
     Route: 065
     Dates: start: 20140130

REACTIONS (1)
  - Liver disorder [Recovering/Resolving]
